FAERS Safety Report 4296275-2 (Version None)
Quarter: 2004Q1

REPORT INFORMATION
  Report Type: 
  Country: None (occurrence: None)
  Receive Date: 20040217
  Receipt Date: 20031003
  Transmission Date: 20041129
  Serious: No
  Sender: FDA-Public Use
  Company Number: US-GLAXOSMITHKLINE-A0428723A

PATIENT
  Age: 42 Year
  Sex: Female

DRUGS (2)
  1. LAMICTAL [Suspect]
     Indication: PERSONALITY DISORDER
     Route: 048
     Dates: start: 20030908, end: 20031003
  2. CLONAZEPAM [Suspect]
     Indication: PERSONALITY DISORDER
     Dates: start: 20030915

REACTIONS (15)
  - BURNING SENSATION [None]
  - CHAPPED LIPS [None]
  - CHILLS [None]
  - CONFUSIONAL STATE [None]
  - DEHYDRATION [None]
  - DISORIENTATION [None]
  - HEADACHE [None]
  - HYPERACUSIS [None]
  - LOOSE STOOLS [None]
  - LYMPHADENOPATHY [None]
  - PAROSMIA [None]
  - PRURITUS [None]
  - PYREXIA [None]
  - RASH [None]
  - STAPHYLOCOCCAL INFECTION [None]
